FAERS Safety Report 17768926 (Version 1)
Quarter: 2020Q2

REPORT INFORMATION
  Report Type: Report from Study
  Country: FR (occurrence: FR)
  Receive Date: 20200512
  Receipt Date: 20200512
  Transmission Date: 20200714
  Serious: Yes (Hospitalization)
  Sender: FDA-Public Use
  Company Number: FR-ROCHE-2597344

PATIENT
  Age: 62 Year
  Sex: Male
  Weight: 70 kg

DRUGS (7)
  1. BEVACIZUMAB. [Suspect]
     Active Substance: BEVACIZUMAB
     Indication: NEUROENDOCRINE CARCINOMA
     Route: 042
     Dates: start: 20200309, end: 20200414
  2. CALCIUM FOLINATE [Concomitant]
     Active Substance: LEUCOVORIN CALCIUM
     Indication: NEUROENDOCRINE CARCINOMA
     Dosage: 200 MG/M2
     Route: 042
     Dates: start: 20200309, end: 20200414
  3. METHYLPREDNISOLONE. [Concomitant]
     Active Substance: METHYLPREDNISOLONE
     Route: 042
     Dates: start: 20200309, end: 20200414
  4. APREPITANT. [Concomitant]
     Active Substance: APREPITANT
     Route: 048
     Dates: start: 20200309, end: 20200414
  5. IRINOTECAN [Concomitant]
     Active Substance: IRINOTECAN
     Indication: NEUROENDOCRINE CARCINOMA
     Route: 042
     Dates: start: 20200309, end: 20200414
  6. 5-FLUOROURACIL [FLUOROURACIL] [Concomitant]
     Active Substance: FLUOROURACIL
     Indication: NEUROENDOCRINE CARCINOMA
     Route: 042
     Dates: start: 20200309, end: 20200414
  7. ONDANSETRON [Concomitant]
     Active Substance: ONDANSETRON
     Route: 042
     Dates: start: 20200309, end: 20200414

REACTIONS (5)
  - Decreased appetite [Not Recovered/Not Resolved]
  - Leukopenia [Not Recovered/Not Resolved]
  - Asthenia [Not Recovered/Not Resolved]
  - Hypercalcaemia [Not Recovered/Not Resolved]
  - Weight decreased [Not Recovered/Not Resolved]

NARRATIVE: CASE EVENT DATE: 20200428
